FAERS Safety Report 9678854 (Version 2)
Quarter: 2013Q4

REPORT INFORMATION
  Report Type: Spontaneous
  Country: US (occurrence: None)
  Receive Date: 20131107
  Receipt Date: 20131126
  Transmission Date: 20140711
  Serious: Yes (Hospitalization)
  Sender: FDA-Public Use
  Company Number: 2013110006

PATIENT
  Age: 57 Year
  Sex: Female

DRUGS (19)
  1. ASTELIN [Suspect]
     Route: 045
  2. ELIDEL [Suspect]
     Route: 061
  3. LIORESAL INTRATECAL [Suspect]
     Indication: MUSCLE SPASTICITY
     Dosage: 1698.3 MCG, DAILY, INTRATHECAL
     Dates: start: 20110330
  4. BACLOFEN (BACLOFEN) (BACLOFEN) [Suspect]
     Route: 048
  5. VOLTAREN EMUGEL [Suspect]
     Route: 061
  6. TIZANIDINE [Suspect]
     Dosage: 1-2 DF;, THREE TIMES PER DAY, ORAL
     Route: 048
     Dates: start: 20130515
  7. CETIRIZINE HYDROCHLORIDE + PSEUDOEPHEDRINE HYDROCHLORIDE ER [Suspect]
     Dosage: 5 MG CET. + 120 MG PSEUD.
     Route: 048
  8. RANITIDINE HYDROCHLORIDE [Suspect]
     Route: 048
  9. PROTONIX [Suspect]
     Route: 048
  10. DULCOLAX (BISACODYL) [Suspect]
  11. CELEXA (CITALOPRAM HYDROBROMIDE) [Suspect]
     Route: 048
  12. FLONASE [Suspect]
     Route: 048
  13. VITAMIN D3 (COLECALCIFEROL) [Suspect]
     Route: 048
  14. MUPIROCIN [Suspect]
     Route: 048
  15. PROCTOZONE (HYDROCORTISONE) [Suspect]
     Route: 048
  16. TRAMADOL HYDROCHLORIDE [Suspect]
     Dosage: 200 MG (50 MG 4 IN 1 D), ORAL
     Dates: start: 20130219
  17. TYLENOL PM 50MG/30ML (DIPHENHYDRAMINE HYDROCHLORIDE, PARACETAMOL) [Suspect]
     Indication: SLEEP DISORDER
     Dosage: 1000 MG EVERY NIGHT AT BEDTIME
     Route: 048
  18. CLOBETASOL PROPIONATE (CLOBETASOL PROPIONATE) (FOAM)) [Suspect]
     Route: 061
  19. SILVER SULFADIAZINE (SULFADIAZINE SILVER) [Suspect]

REACTIONS (4)
  - Muscle spasticity [None]
  - Muscle spasms [None]
  - Pain [None]
  - Device malfunction [None]
